FAERS Safety Report 17797699 (Version 1)
Quarter: 2020Q2

REPORT INFORMATION
  Report Type: Spontaneous
  Country: US (occurrence: US)
  Receive Date: 20200518
  Receipt Date: 20200518
  Transmission Date: 20200714
  Serious: Yes (Hospitalization)
  Sender: FDA-Public Use
  Company Number: US-KAMADA LIMITED-2019US011662

PATIENT

DRUGS (16)
  1. LMX4 [Concomitant]
     Active Substance: LIDOCAINE
     Dosage: UNK
     Route: 065
  2. PROAIR HFA [Concomitant]
     Active Substance: ALBUTEROL SULFATE
     Dosage: UNK
     Route: 065
  3. LORATADINE. [Concomitant]
     Active Substance: LORATADINE
     Dosage: UNK
     Route: 065
  4. GLASSIA [Suspect]
     Active Substance: .ALPHA.1-PROTEINASE INHIBITOR HUMAN
     Indication: ALPHA-1 ANTITRYPSIN DEFICIENCY
     Dosage: 60 MG/KG, 1/WEEK (950 MG VIAL)
     Route: 042
     Dates: start: 201902
  5. EPINEPHRINE. [Concomitant]
     Active Substance: EPINEPHRINE
     Dosage: AUTO-INJECTOR
     Route: 065
  6. CITALOPRAM [Concomitant]
     Active Substance: CITALOPRAM HYDROBROMIDE
     Dosage: UNK
     Route: 065
  7. SPIRIVA [Concomitant]
     Active Substance: TIOTROPIUM BROMIDE MONOHYDRATE
     Dosage: UNK
     Route: 065
  8. DIPHENHYDRAMINE. [Concomitant]
     Active Substance: DIPHENHYDRAMINE
     Dosage: UNK
     Route: 065
  9. FLUBLOK QUADRIVALENT [Concomitant]
     Dosage: UNK
     Route: 065
  10. OXYGEN. [Concomitant]
     Active Substance: OXYGEN
     Dosage: UNK
     Route: 065
  11. ALBUTEROL [SALBUTAMOL] [Concomitant]
     Active Substance: ALBUTEROL
     Dosage: UNK
     Route: 065
  12. AZITHROMYCIN ANHYDROUS. [Concomitant]
     Active Substance: AZITHROMYCIN ANHYDROUS
     Dosage: UNK
     Route: 065
  13. SODIUM CHLORIDE. [Concomitant]
     Active Substance: SODIUM CHLORIDE
     Dosage: UNK
     Route: 065
  14. MONTELUKAST [Concomitant]
     Active Substance: MONTELUKAST SODIUM
     Dosage: UNK
     Route: 065
  15. BREO ELLIPTA [Concomitant]
     Active Substance: FLUTICASONE FUROATE\VILANTEROL TRIFENATATE
     Dosage: UNK
     Route: 065
  16. PREDNISONE. [Concomitant]
     Active Substance: PREDNISONE
     Dosage: UNK
     Route: 065

REACTIONS (3)
  - Chest discomfort [Unknown]
  - Endobronchial valve implantation [Unknown]
  - Influenza like illness [Unknown]
